FAERS Safety Report 10255097 (Version 1)
Quarter: 2014Q2

REPORT INFORMATION
  Report Type: Spontaneous
  Country: CA (occurrence: CA)
  Receive Date: 20140624
  Receipt Date: 20140624
  Transmission Date: 20141212
  Serious: Yes (Other)
  Sender: FDA-Public Use
  Company Number: CA-PFIZER INC-2014168723

PATIENT
  Sex: 0
  Weight: 2 kg

DRUGS (3)
  1. DOXORUBICIN HCL [Suspect]
     Route: 064
  2. CYCLOPHOSPHAMIDE [Suspect]
     Route: 064
  3. PACLITAXEL INJECTION [Suspect]
     Route: 064

REACTIONS (4)
  - Maternal exposure during pregnancy [Unknown]
  - Foetal growth restriction [Unknown]
  - Foetal exposure during pregnancy [None]
  - Maternal drugs affecting foetus [None]
